FAERS Safety Report 6681631-5 (Version None)
Quarter: 2010Q2

REPORT INFORMATION
  Report Type: 
  Country: None (occurrence: None)
  Receive Date: 20100414
  Receipt Date: 20100402
  Transmission Date: 20101027
  Serious: Yes (Hospitalization, Other)
  Sender: FDA-Public Use
  Company Number: US-ELI_LILLY_AND_COMPANY-US201003002491

PATIENT
  Age: 38 Year
  Sex: Female
  Weight: 115.28 kg

DRUGS (7)
  1. CYMBALTA [Suspect]
     Dosage: 60 MG, UNK
     Route: 048
     Dates: start: 20100219, end: 20100219
  2. FLEXERIL [Concomitant]
     Indication: BACK PAIN
     Dosage: 10 MG, AS NEEDED
     Dates: start: 20080507
  3. ZESTORETIC [Concomitant]
     Indication: HYPERTENSION
     Dosage: 1 D/F, DAILY (1/D)
     Dates: start: 20000707
  4. LORATADINE [Concomitant]
     Indication: HYPERSENSITIVITY
     Dosage: 10 MG, DAILY (1/D)
     Dates: start: 20080801
  5. FLONASE [Concomitant]
     Indication: HYPERSENSITIVITY
     Dosage: 50 UG, DAILY (1/D)
     Route: 045
     Dates: start: 20080821
  6. VICODIN [Concomitant]
     Indication: BACK PAIN
     Dosage: 1 D/F, AS NEEDED
     Dates: start: 20080523
  7. LO/OVRAL [Concomitant]
     Dosage: 1 D/F, DAILY (1/D)

REACTIONS (3)
  - DYSPHAGIA [None]
  - DYSPNOEA [None]
  - PHARYNGEAL OEDEMA [None]
